FAERS Safety Report 8001406-4 (Version None)
Quarter: 2011Q4

REPORT INFORMATION
  Report Type: 
  Country: None (occurrence: None)
  Receive Date: 20111219
  Receipt Date: 20111203
  Transmission Date: 20120403
  Serious: Yes (Other)
  Sender: FDA-Public Use
  Company Number: 2011AP002955

PATIENT
  Age: 53 Year
  Sex: Male

DRUGS (5)
  1. VALGANCICLOVIR [Concomitant]
  2. MYCOPHENOLATE MOFETIL [Suspect]
     Indication: IMMUNOSUPPRESSION
     Dates: start: 20090201, end: 20091001
  3. MYCOPHENOLATE MOFETIL [Suspect]
     Indication: HEART TRANSPLANT
     Dates: start: 20090201, end: 20091001
  4. TACROLIMUS [Suspect]
     Indication: IMMUNOSUPPRESSION
  5. TACROLIMUS [Suspect]
     Indication: HEART TRANSPLANT

REACTIONS (5)
  - FATIGUE [None]
  - THROMBOCYTOPENIA [None]
  - CHRONIC MYELOID LEUKAEMIA [None]
  - BONE MARROW TOXICITY [None]
  - NORMOCHROMIC NORMOCYTIC ANAEMIA [None]
